FAERS Safety Report 8381255-8 (Version None)
Quarter: 2012Q2

REPORT INFORMATION
  Report Type: 
  Country: None (occurrence: None)
  Receive Date: 20120522
  Receipt Date: 20111122
  Transmission Date: 20120825
  Serious: Yes (Disabling)
  Sender: FDA-Public Use
  Company Number: 2011-09593

PATIENT
  Age: 44 Year
  Sex: Male

DRUGS (1)
  1. IMMUCYST [Suspect]
     Indication: BLADDER CANCER
     Dates: start: 20080801, end: 20110101

REACTIONS (4)
  - OFF LABEL USE [None]
  - DRUG INTOLERANCE [None]
  - REDUCED BLADDER CAPACITY [None]
  - HAEMATURIA [None]
